FAERS Safety Report 5400867-4 (Version None)
Quarter: 2007Q3

REPORT INFORMATION
  Report Type: 
  Country: None (occurrence: None)
  Receive Date: 20070730
  Receipt Date: 20070503
  Transmission Date: 20080115
  Serious: No
  Sender: FDA-Public Use
  Company Number: A0649870A

PATIENT
  Age: 55 Year
  Sex: Female

DRUGS (4)
  1. IMITREX [Suspect]
     Indication: MIGRAINE
     Dosage: 100MG SINGLE DOSE
     Route: 048
     Dates: start: 20070424, end: 20070424
  2. CYMBALTA [Concomitant]
  3. LYRICA [Concomitant]
  4. RELAFEN [Concomitant]

REACTIONS (6)
  - BURNING SENSATION [None]
  - DISORIENTATION [None]
  - DYSPNOEA [None]
  - LIP SWELLING [None]
  - SWOLLEN TONGUE [None]
  - THROAT TIGHTNESS [None]
